FAERS Safety Report 25872984 (Version 2)
Quarter: 2025Q4

REPORT INFORMATION
  Report Type: Spontaneous
  Country: US (occurrence: US)
  Receive Date: 20251002
  Receipt Date: 20251014
  Transmission Date: 20260118
  Serious: Yes (Other)
  Sender: LIFE MOLECULAR IMAGING LTD
  Company Number: US-Life Molecular Imaging Ltd-2185768

PATIENT
  Sex: Male

DRUGS (1)
  1. NEURACEQ [Suspect]
     Active Substance: FLORBETABEN F-18
     Indication: Imaging procedure
     Dates: start: 20250924, end: 20250924

REACTIONS (11)
  - Loss of consciousness [Recovered/Resolved]
  - Myalgia [Recovered/Resolved]
  - Fatigue [Not Recovered/Not Resolved]
  - Hyperhidrosis [Recovered/Resolved]
  - Disorientation [Recovered/Resolved]
  - Erythema [Recovered/Resolved]
  - Musculoskeletal stiffness [Recovered/Resolved]
  - Euphoric mood [Recovered/Resolved]
  - Presyncope [Recovered/Resolved]
  - Headache [Recovered/Resolved]
  - Seizure like phenomena [Recovered/Resolved]

NARRATIVE: CASE EVENT DATE: 20250924
